FAERS Safety Report 22114833 (Version 1)
Quarter: 2023Q1

REPORT INFORMATION
  Report Type: Spontaneous
  Country: JP (occurrence: JP)
  Receive Date: 20230320
  Receipt Date: 20230320
  Transmission Date: 20230418
  Serious: Yes (Life-Threatening, Hospitalization, Other)
  Sender: FDA-Public Use
  Company Number: JP-MSD-M2023-07393

PATIENT
  Age: 83 Year
  Sex: Male

DRUGS (2)
  1. BRIDION [Suspect]
     Active Substance: SUGAMMADEX
     Indication: Neuromuscular blockade reversal
     Dosage: 200 MILLIGRAM, QD
     Route: 042
  2. ROCURONIUM BROMIDE [Concomitant]
     Active Substance: ROCURONIUM BROMIDE
     Dosage: 300 MILLIGRAM
     Route: 051

REACTIONS (2)
  - Recurrence of neuromuscular blockade [Not Recovered/Not Resolved]
  - Respiratory arrest [Unknown]
